FAERS Safety Report 7731796-9 (Version None)
Quarter: 2011Q3

REPORT INFORMATION
  Report Type: 
  Country: None (occurrence: None)
  Receive Date: 20110906
  Receipt Date: 20110706
  Transmission Date: 20111222
  Serious: No
  Sender: FDA-Public Use
  Company Number: US-AMGEN-USASP2011034360

PATIENT
  Sex: Female

DRUGS (6)
  1. ASPIRIN LOW [Concomitant]
  2. OMEPRAZOLE [Concomitant]
     Dosage: UNK
  3. DIGOXIN [Concomitant]
  4. PROLIA [Suspect]
     Indication: OSTEOPOROSIS POSTMENOPAUSAL
     Dosage: UNK
     Dates: start: 20110101
  5. METOPROLOL [Concomitant]
     Dosage: UNK
  6. TRIAMTERENE AND HYDROCHLOROTHIAZIDE [Concomitant]
     Dosage: UNK

REACTIONS (2)
  - MUSCULAR WEAKNESS [None]
  - INSOMNIA [None]
